FAERS Safety Report 9277026 (Version 2)
Quarter: 2013Q2

REPORT INFORMATION
  Report Type: Spontaneous
  Country: ES (occurrence: None)
  Receive Date: 20130501
  Receipt Date: 20130530
  Transmission Date: 20140414
  Serious: Yes (Other)
  Sender: FDA-Public Use
  Company Number: 2013ES008266

PATIENT
  Sex: Female

DRUGS (4)
  1. ALOXI [Suspect]
     Indication: PROPHYLAXIS OF NAUSEA AND VOMITING
  2. MELPHALAN [Suspect]
     Indication: CHEMOTHERAPY
  3. MELPHALAN [Suspect]
     Indication: PLASMA CELL MYELOMA
  4. MELPHALAN [Suspect]

REACTIONS (4)
  - Convulsion [None]
  - Headache [None]
  - No therapeutic response [None]
  - Nausea [None]
